FAERS Safety Report 6017088-7 (Version None)
Quarter: 2008Q4

REPORT INFORMATION
  Report Type: 
  Country: None (occurrence: None)
  Receive Date: 20081223
  Receipt Date: 20081219
  Transmission Date: 20090506
  Serious: Yes (Death)
  Sender: FDA-Public Use
  Company Number: JP-JNJFOC-20081201546

PATIENT
  Age: 8 Decade
  Sex: Male

DRUGS (3)
  1. FENTANYL [Suspect]
     Indication: DRUG USE FOR UNKNOWN INDICATION
     Route: 062
     Dates: start: 20081130, end: 20081202
  2. MORPHINE HYDROCHLORIDE [Concomitant]
     Route: 065
  3. MORPHINE HYDROCHLORIDE [Concomitant]
     Route: 065

REACTIONS (5)
  - DEPRESSED LEVEL OF CONSCIOUSNESS [None]
  - DEVICE FAILURE [None]
  - DISEASE PROGRESSION [None]
  - PAIN [None]
  - PYREXIA [None]
